FAERS Safety Report 11317364 (Version 1)
Quarter: 2015Q3

REPORT INFORMATION
  Report Type: Spontaneous
  Country: MX (occurrence: None)
  Receive Date: 20150727
  Receipt Date: 20150727
  Transmission Date: 20151125
  Serious: No
  Sender: FDA-Public Use
  Company Number: None

PATIENT
  Age: 62 Year
  Sex: Female

DRUGS (7)
  1. TOLTERODINE [Suspect]
     Active Substance: TOLTERODINE
     Indication: DRUG THERAPY
     Dosage: 2 PILLS PER DAY
     Route: 048
     Dates: start: 20150701, end: 20150708
  2. METROPOLOL [Concomitant]
     Active Substance: METOPROLOL
  3. SUCRALFATO [Concomitant]
     Active Substance: SUCRALFATE
  4. LOSARTAN. [Concomitant]
     Active Substance: LOSARTAN
  5. PENTASA [Concomitant]
     Active Substance: MESALAMINE
  6. METFORMIN [Concomitant]
     Active Substance: METFORMIN HYDROCHLORIDE
  7. PAROXETIN [Concomitant]
     Active Substance: PAROXETINE HYDROCHLORIDE

REACTIONS (3)
  - Drug effect decreased [None]
  - Pruritus [None]
  - Rash [None]

NARRATIVE: CASE EVENT DATE: 20150701
